FAERS Safety Report 6440117-3 (Version None)
Quarter: 2009Q4

REPORT INFORMATION
  Report Type: 
  Country: None (occurrence: None)
  Receive Date: 20091113
  Receipt Date: 20081210
  Transmission Date: 20100525
  Serious: No
  Sender: FDA-Public Use
  Company Number: A0759990A

PATIENT
  Age: 43 Year
  Sex: Female

DRUGS (6)
  1. COREG [Suspect]
     Indication: HYPERTENSION
     Dosage: 25MG TWICE PER DAY
     Route: 048
  2. POTASSIUM CHLORIDE [Concomitant]
  3. CLARITIN [Concomitant]
  4. PAXIL [Concomitant]
  5. CALCIUM [Concomitant]
  6. NORVASC [Concomitant]

REACTIONS (4)
  - FATIGUE [None]
  - OVERDOSE [None]
  - SWELLING [None]
  - WEIGHT INCREASED [None]
